FAERS Safety Report 5347711-1 (Version None)
Quarter: 2007Q2

REPORT INFORMATION
  Report Type: 
  Country: None (occurrence: None)
  Receive Date: 20070606
  Receipt Date: 20070531
  Transmission Date: 20071010
  Serious: Yes (Hospitalization)
  Sender: FDA-Public Use
  Company Number: AU-AVENTIS-200714852GDDC

PATIENT
  Age: 42 Year
  Sex: Female

DRUGS (2)
  1. MINIRIN [Suspect]
     Route: 042
  2. VENLAFAXINE HCL [Suspect]

REACTIONS (2)
  - DRUG INTERACTION [None]
  - HYPONATRAEMIA [None]
